FAERS Safety Report 22258731 (Version 1)
Quarter: 2023Q2

REPORT INFORMATION
  Report Type: Spontaneous
  Country: CH (occurrence: CH)
  Receive Date: 20230427
  Receipt Date: 20230427
  Transmission Date: 20230722
  Serious: Yes (Other)
  Sender: FDA-Public Use
  Company Number: CH-JNJFOC-20230401698

PATIENT
  Age: 49 Year
  Sex: Male
  Weight: 83 kg

DRUGS (2)
  1. REMICADE [Suspect]
     Active Substance: INFLIXIMAB
     Indication: Spondylitis
     Route: 041
     Dates: start: 202105, end: 202303
  2. METHOTREXATE [Suspect]
     Active Substance: METHOTREXATE
     Indication: Spondylitis
     Route: 065
     Dates: start: 202008, end: 202303

REACTIONS (1)
  - Depression [Recovered/Resolved]

NARRATIVE: CASE EVENT DATE: 20211001
